FAERS Safety Report 8947673 (Version 1)
Quarter: 2012Q4

REPORT INFORMATION
  Report Type: 
  Country: US (occurrence: US)
  Receive Date: 20121205
  Receipt Date: 20121205
  Transmission Date: 20130627
  Serious: Yes (Hospitalization)
  Sender: FDA-Public Use
  Company Number: US-BAYER-2012-127316

PATIENT
  Age: 20 Year
  Sex: Female
  Weight: 70.3 kg

DRUGS (13)
  1. YAZ [Suspect]
     Indication: ACNE
     Dosage: UNK
     Dates: start: 20070729, end: 20080315
  2. YAZ [Suspect]
     Indication: PREMENSTRUAL SYNDROME
  3. OCELLA [Suspect]
     Indication: ACNE
     Dosage: UNK
     Dates: start: 20080922, end: 20100616
  4. OCELLA [Suspect]
     Indication: PREMENSTRUAL SYNDROME
  5. NSAID^S [Concomitant]
  6. ANTIBIOTICS [Concomitant]
     Indication: GI INFECTION
     Dosage: UNK
     Dates: start: 201006
  7. ADVAIR [Concomitant]
     Dosage: UNK
     Dates: start: 2003, end: 2008
  8. ALBUTEROL [Concomitant]
     Dosage: UNK
     Dates: start: 2003, end: 2008
  9. CITALOPRAM [Concomitant]
     Indication: DEPRESSION
     Dosage: UNK
     Dates: start: 2003
  10. CITALOPRAM [Concomitant]
     Indication: ANXIETY
  11. CLINDAMYCIN [Concomitant]
     Indication: ACNE
     Dosage: UNK
     Dates: start: 2004
  12. CELEXA [Concomitant]
  13. TRAZODONE [Concomitant]

REACTIONS (4)
  - Pulmonary embolism [None]
  - Dyspnoea [None]
  - Chest pain [None]
  - Off label use [None]
